FAERS Safety Report 13353868 (Version 1)
Quarter: 2017Q1

REPORT INFORMATION
  Report Type: Spontaneous
  Country: US (occurrence: US)
  Receive Date: 20170320
  Receipt Date: 20170320
  Transmission Date: 20170429
  Serious: No
  Sender: FDA-Public Use
  Company Number: None

PATIENT
  Age: 2 Year
  Sex: Female
  Weight: 15.75 kg

DRUGS (4)
  1. MULTIVITAMIN WITH FLUORIDE [Concomitant]
     Active Substance: .ALPHA.-TOCOPHEROL\.ALPHA.-TOCOPHEROL ACETATE\.ALPHA.-TOCOPHEROL ACETATE, DL-\ASCORBIC ACID\CHOLECALCIFEROL\COBALAMIN\CYANOCOBALAMIN\FLUORIDE ION\FOLIC ACID\NIACIN\NIACINAMIDE\PYRIDOXINE\PYRIDOXINE HYDROCHLORIDE\RIBOFLAVIN\SODIUM ASCORBATE\SODIUM FLUORIDE\THIAMINE\THIAMINE MONONITRATE\VITAMIN A\VITA
  2. CHEWABLE FISH OIL [Concomitant]
  3. TAMIFLU [Suspect]
     Active Substance: OSELTAMIVIR PHOSPHATE
     Indication: INFLUENZA
     Route: 048
     Dates: start: 20170317, end: 20170320
  4. HYLAND^S COUGH SYRUP (NATURAL) [Concomitant]

REACTIONS (5)
  - Psychomotor hyperactivity [None]
  - Agitation [None]
  - Initial insomnia [None]
  - Aggression [None]
  - Crying [None]

NARRATIVE: CASE EVENT DATE: 20170319
